FAERS Safety Report 25387940 (Version 1)
Quarter: 2025Q2

REPORT INFORMATION
  Report Type: Report from Study
  Country: RO (occurrence: RO)
  Receive Date: 20250603
  Receipt Date: 20250603
  Transmission Date: 20250717
  Serious: Yes (Death)
  Sender: CELLTRION
  Company Number: RO-CELLTRION INC.-2023RO019396

PATIENT

DRUGS (15)
  1. BEVACIZUMAB [Suspect]
     Active Substance: BEVACIZUMAB
     Indication: Hepatocellular carcinoma
     Route: 065
     Dates: start: 20221111
  2. ATEZOLIZUMAB [Suspect]
     Active Substance: ATEZOLIZUMAB
     Indication: Hepatocellular carcinoma
     Route: 041
     Dates: start: 20221111
  3. ENTECAVIR [Concomitant]
     Active Substance: ENTECAVIR
     Dates: end: 20241121
  4. LORATADINE [Concomitant]
     Active Substance: LORATADINE
     Dates: start: 20231011, end: 20231020
  5. SPIRONOLACTONE [Concomitant]
     Active Substance: SPIRONOLACTONE
     Dates: end: 20241121
  6. BETAHISTINE [Concomitant]
     Active Substance: BETAHISTINE
     Dates: end: 20241121
  7. ADVANTAN MILK [Concomitant]
     Dates: start: 20231011, end: 20231020
  8. OXYBUTYNIN [Concomitant]
     Active Substance: OXYBUTYNIN
     Dates: end: 20241121
  9. URSODIOL [Concomitant]
     Active Substance: URSODIOL
     Dates: end: 20241121
  10. TAMSULOSIN HYDROCHLORIDE [Concomitant]
     Active Substance: TAMSULOSIN HYDROCHLORIDE
     Dates: end: 20241121
  11. METRONIDAZOLE [Concomitant]
     Active Substance: METRONIDAZOLE
     Dates: start: 20230301, end: 20230305
  12. DIETARY SUPPLEMENT\HERBALS\MILK THISTLE [Concomitant]
     Active Substance: MILK THISTLE
     Dates: end: 20241121
  13. BISOPROLOL FUMARATE [Concomitant]
     Active Substance: BISOPROLOL FUMARATE
     Dates: end: 20241121
  14. PERINDOPRIL [Concomitant]
     Active Substance: PERINDOPRIL
     Dates: start: 20230201, end: 20241121
  15. SORAFENIB [Concomitant]
     Active Substance: SORAFENIB
     Dates: start: 20240405

REACTIONS (4)
  - Death [Fatal]
  - Hypertension [Recovered/Resolved]
  - Arthralgia [Recovering/Resolving]
  - Intentional product use issue [Unknown]

NARRATIVE: CASE EVENT DATE: 20230101
